FAERS Safety Report 14338175 (Version 2)
Quarter: 2018Q1

REPORT INFORMATION
  Report Type: Spontaneous
  Country: IN (occurrence: IN)
  Receive Date: 20171229
  Receipt Date: 20180112
  Transmission Date: 20180509
  Serious: Yes (Congenital Anomaly, Other)
  Sender: FDA-Public Use
  Company Number: IN-LUPIN LIMITED-2017-07556

PATIENT

DRUGS (5)
  1. SERTRALINE [Suspect]
     Active Substance: SERTRALINE HYDROCHLORIDE
     Indication: AFFECTIVE DISORDER
     Dosage: 50 MG, UNK (SINCE 4 YEARS TILL THIRD TRIMESTER OF PREGNANCY)
     Route: 064
  2. OLANZAPINE. [Suspect]
     Active Substance: OLANZAPINE
     Dosage: 5 MG, UNK (NIGHT, SINCE 4 YEARS TILL THIRD TRIMESTER OF PREGNANCY )
     Route: 065
  3. OLANZAPINE. [Suspect]
     Active Substance: OLANZAPINE
     Indication: AFFECTIVE DISORDER
     Dosage: 2.5 MG, AT NIGHT
     Route: 064
  4. QUETIAPINE. [Concomitant]
     Active Substance: QUETIAPINE
     Indication: AFFECTIVE DISORDER
     Dosage: 200 MG, SUSTAINED RELEASE FORMULATION (AT NIGHT)
     Route: 064
  5. SERTRALINE [Suspect]
     Active Substance: SERTRALINE HYDROCHLORIDE
     Dosage: 150 UNK, UNK
     Route: 064

REACTIONS (19)
  - Wrist deformity [Unknown]
  - Subgaleal haematoma [Unknown]
  - Oedema [Unknown]
  - Foetal exposure during pregnancy [Unknown]
  - Limb deformity [Unknown]
  - Talipes [Unknown]
  - Neck deformity [Unknown]
  - Heart rate decreased [Unknown]
  - Micrognathia [Unknown]
  - Hypokinesia [Unknown]
  - Polyhydramnios [Unknown]
  - Areflexia [Unknown]
  - Pulmonary arterial hypertension [Unknown]
  - Dyspnoea [Unknown]
  - Finger deformity [Unknown]
  - Teratogenicity [Unknown]
  - Single umbilical artery [Unknown]
  - Congenital choroid plexus cyst [Unknown]
  - Cyanosis [Unknown]
